FAERS Safety Report 12430461 (Version 1)
Quarter: 2016Q2

REPORT INFORMATION
  Report Type: Report from Study
  Country: US (occurrence: US)
  Receive Date: 20160602
  Receipt Date: 20160602
  Transmission Date: 20160815
  Serious: Yes (Hospitalization)
  Sender: FDA-Public Use
  Company Number: US-EXELIXIS-XL18416006497

PATIENT
  Age: 63 Year
  Sex: Male

DRUGS (1)
  1. XL184 [Suspect]
     Active Substance: CABOZANTINIB
     Indication: ACUTE MYELOID LEUKAEMIA
     Dosage: 40 MG, QD
     Route: 048
     Dates: start: 20160429, end: 20160523

REACTIONS (2)
  - Febrile neutropenia [Unknown]
  - Abdominal pain [Unknown]

NARRATIVE: CASE EVENT DATE: 20160529
